FAERS Safety Report 20373580 (Version 1)
Quarter: 2022Q1

REPORT INFORMATION
  Report Type: Spontaneous
  Country: FR (occurrence: FR)
  Receive Date: 20220125
  Receipt Date: 20220125
  Transmission Date: 20220423
  Serious: Yes (Hospitalization)
  Sender: FDA-Public Use
  Company Number: None

PATIENT
  Age: 73 Year
  Sex: Female
  Weight: 95 kg

DRUGS (4)
  1. AMOXICILLIN [Suspect]
     Active Substance: AMOXICILLIN
     Indication: Endocarditis
     Dosage: 1 G, QD
     Route: 042
     Dates: start: 20190615, end: 20190617
  2. AMOXICILLIN [Suspect]
     Active Substance: AMOXICILLIN
     Dosage: 12 G PUIS 14 G
     Route: 042
     Dates: start: 20190618, end: 20190624
  3. CLAVULANIC ACID [Suspect]
     Active Substance: CLAVULANIC ACID
     Indication: Endocarditis
     Dosage: 125 MG, QD
     Route: 048
     Dates: start: 20190615, end: 20190617
  4. ASPIRIN [Suspect]
     Active Substance: ASPIRIN
     Indication: Ischaemic stroke
     Dosage: 300 MG PUIS 250 MG
     Route: 042
     Dates: start: 20190615, end: 20190618

REACTIONS (1)
  - Acute kidney injury [Not Recovered/Not Resolved]

NARRATIVE: CASE EVENT DATE: 20190624
